FAERS Safety Report 11305297 (Version 1)
Quarter: 2015Q3

REPORT INFORMATION
  Report Type: Spontaneous
  Country: US (occurrence: US)
  Receive Date: 20150723
  Receipt Date: 20150723
  Transmission Date: 20151125
  Serious: No
  Sender: FDA-Public Use
  Company Number: US-JNJFOC-20150410113

PATIENT
  Age: 66 Year
  Sex: Female
  Weight: 66.23 kg

DRUGS (2)
  1. ZYRTEC [Suspect]
     Active Substance: CETIRIZINE HYDROCHLORIDE
     Route: 048
  2. ZYRTEC [Suspect]
     Active Substance: CETIRIZINE HYDROCHLORIDE
     Indication: MULTIPLE ALLERGIES
     Dosage: 1 TABLET; TWICE IN 24 HOURS
     Route: 048
     Dates: start: 20150409

REACTIONS (2)
  - Medication error [Unknown]
  - Product use issue [Unknown]
